FAERS Safety Report 11445402 (Version 1)
Quarter: 2015Q3

REPORT INFORMATION
  Report Type: Spontaneous
  Country: US (occurrence: None)
  Receive Date: 20150901
  Receipt Date: 20150901
  Transmission Date: 20151125
  Serious: Yes (Congenital Anomaly, Other)
  Sender: FDA-Public Use
  Company Number: None

PATIENT
  Age: 19 Year
  Sex: Female
  Weight: 54.43 kg

DRUGS (1)
  1. IMPLANON [Suspect]
     Active Substance: ETONOGESTREL
     Dates: start: 20120905

REACTIONS (4)
  - Maternal exposure timing unspecified [None]
  - Pregnancy with implant contraceptive [None]
  - Implant site pain [None]
  - Abortion spontaneous [None]

NARRATIVE: CASE EVENT DATE: 20150801
